FAERS Safety Report 12507798 (Version 1)
Quarter: 2016Q2

REPORT INFORMATION
  Report Type: Spontaneous
  Country: US (occurrence: US)
  Receive Date: 20160629
  Receipt Date: 20160629
  Transmission Date: 20160815
  Serious: No
  Sender: FDA-Public Use
  Company Number: US-PFIZER INC-2016294966

PATIENT
  Age: 42 Year
  Sex: Female
  Weight: 104 kg

DRUGS (2)
  1. LYRICA [Suspect]
     Active Substance: PREGABALIN
     Indication: FIBROMYALGIA
     Dosage: 50 MG, 2X/DAY, ONE IN THE MORNING AND ONE AT NIGHT
     Dates: start: 20160509
  2. LYRICA [Suspect]
     Active Substance: PREGABALIN
     Dosage: 150 MG, DAILY 50MG MORNING 100MG AT NIGHT
     Dates: start: 201605

REACTIONS (1)
  - Drug ineffective [Unknown]
